FAERS Safety Report 10176191 (Version 1)
Quarter: 2014Q2

REPORT INFORMATION
  Report Type: Spontaneous
  Country: US (occurrence: US)
  Receive Date: 20140516
  Receipt Date: 20140516
  Transmission Date: 20141212
  Serious: Yes (Other)
  Sender: FDA-Public Use
  Company Number: US-TEVA-481840USA

PATIENT
  Age: 41 Year
  Sex: Female
  Weight: 88.08 kg

DRUGS (4)
  1. PARAGARD 380A [Suspect]
     Indication: CONTRACEPTION
     Route: 015
     Dates: start: 20140415, end: 20140429
  2. IRON [Concomitant]
     Indication: ANAEMIA
  3. CALCIUM [Concomitant]
     Indication: BREAST FEEDING
  4. PRENATAL VITAMINS [Concomitant]
     Indication: BREAST FEEDING

REACTIONS (1)
  - Device dislocation [Recovered/Resolved]
